FAERS Safety Report 15737703 (Version 1)
Quarter: 2018Q4

REPORT INFORMATION
  Report Type: Spontaneous
  Country: TR (occurrence: TR)
  Receive Date: 20181219
  Receipt Date: 20181219
  Transmission Date: 20190205
  Serious: Yes (Other)
  Sender: FDA-Public Use
  Company Number: TR-TEVA-2018-TR-990323

PATIENT
  Sex: Male
  Weight: 80 kg

DRUGS (6)
  1. GLUKOFEN 1000MG [Concomitant]
     Dosage: GLUKOFEN 1000 MG FILM-COATED TABLET
     Route: 048
  2. NUVIGIL [Suspect]
     Active Substance: ARMODAFINIL
     Route: 048
  3. DELIX 5MG [Concomitant]
     Dosage: DELIX 5 MG TABLET
     Route: 048
  4. LIPOFEN [Concomitant]
     Active Substance: FENOFIBRATE
     Dosage: LIPOFEN SR MICROPELLET CAPSULE
     Route: 048
  5. PEXOLA 0.375MG [Concomitant]
     Dosage: PEXOLA 0.375 MG LONG-RELEASED TABLET
     Route: 048
  6. EFEXOR 150MG [Concomitant]
     Dosage: EFEXOR XR 150 MG MICROPELLET CAPSULE
     Route: 048

REACTIONS (1)
  - Narcolepsy [Recovered/Resolved]
